FAERS Safety Report 15129698 (Version 15)
Quarter: 2019Q4

REPORT INFORMATION
  Report Type: Spontaneous
  Country: US (occurrence: US)
  Receive Date: 20180711
  Receipt Date: 20191223
  Transmission Date: 20200122
  Serious: Yes (Hospitalization, Other)
  Sender: FDA-Public Use
  Company Number: US-SA-2018SA179980

PATIENT
  Age: 43 Year
  Sex: Female

DRUGS (18)
  1. DUPIXENT [Suspect]
     Active Substance: DUPILUMAB
     Indication: ECZEMA
     Dosage: 150 MG/ML,QOW
     Route: 058
     Dates: start: 201804
  2. EUCRISA [Concomitant]
     Active Substance: CRISABOROLE
  3. HYDROXYZINE HCL [Concomitant]
     Active Substance: HYDROXYZINE HYDROCHLORIDE
  4. ZYRTEC [Concomitant]
     Active Substance: CETIRIZINE HYDROCHLORIDE
  5. SYSTANE (HYPROMELLOSE 2910 (4000 MPA.S)) [Concomitant]
     Active Substance: HYPROMELLOSE 2910 (4000 MPA.S)
  6. DUPIXENT [Suspect]
     Active Substance: DUPILUMAB
     Indication: DERMATITIS ATOPIC
     Dosage: 150 MG/ML, QOW
     Route: 058
     Dates: start: 20170404
  7. VITAMIN A NOS [Concomitant]
     Active Substance: VITAMIN A
  8. OTEZLA [Suspect]
     Active Substance: APREMILAST
     Indication: ECZEMA
  9. ALLEGRA-D [Concomitant]
     Active Substance: FEXOFENADINE\PSEUDOEPHEDRINE
  10. DUPIXENT [Suspect]
     Active Substance: DUPILUMAB
     Dosage: 300MG, QOW
     Route: 058
     Dates: start: 20180404, end: 20191202
  11. OTEZLA [Suspect]
     Active Substance: APREMILAST
     Indication: DERMATITIS ATOPIC
  12. MAGNESIUM [Concomitant]
     Active Substance: MAGNESIUM
  13. VITAMIN E NOS [Concomitant]
     Active Substance: .ALPHA.-TOCOPHEROL
  14. CYCLOSPORINE. [Concomitant]
     Active Substance: CYCLOSPORINE
  15. TACROLIMUS. [Concomitant]
     Active Substance: TACROLIMUS
  16. LEXAPRO [Concomitant]
     Active Substance: ESCITALOPRAM OXALATE
  17. COD LIVER [Concomitant]
     Active Substance: COD LIVER OIL
  18. L-SERINE [Concomitant]

REACTIONS (16)
  - Skin irritation [Not Recovered/Not Resolved]
  - Condition aggravated [Not Recovered/Not Resolved]
  - Lacrimation increased [Recovered/Resolved]
  - Hot flush [Recovered/Resolved]
  - Condition aggravated [Not Recovered/Not Resolved]
  - Hospitalisation [Recovered/Resolved]
  - Rash [Recovered/Resolved]
  - Pruritus [Not Recovered/Not Resolved]
  - Malaise [Recovered/Resolved]
  - Vomiting [Not Recovered/Not Resolved]
  - Rash [Not Recovered/Not Resolved]
  - Depression [Not Recovered/Not Resolved]
  - Eczema [Not Recovered/Not Resolved]
  - Dermatitis atopic [Not Recovered/Not Resolved]
  - Conjunctivitis [Unknown]
  - Dry eye [Unknown]

NARRATIVE: CASE EVENT DATE: 2018
